FAERS Safety Report 9191380 (Version 1)
Quarter: 2013Q1

REPORT INFORMATION
  Report Type: Spontaneous
  Country: US (occurrence: US)
  Receive Date: 20130326
  Receipt Date: 20130326
  Transmission Date: 20140127
  Serious: No
  Sender: FDA-Public Use
  Company Number: US-009507513-1303USA012778

PATIENT
  Sex: Female

DRUGS (2)
  1. DR. SCHOLL^S INGROWN TOENAIL PAIN RELIEVER [Suspect]
     Indication: INGROWING NAIL
     Dosage: UNK, UNKNOWN
     Route: 061
     Dates: start: 201212
  2. DR. SCHOLL^S INGROWN TOENAIL PAIN RELIEVER [Suspect]
     Indication: ONYCHALGIA

REACTIONS (2)
  - Pain in extremity [Unknown]
  - Drug ineffective [Unknown]
